FAERS Safety Report 4399657-3 (Version None)
Quarter: 2004Q3

REPORT INFORMATION
  Report Type: 
  Country: None (occurrence: None)
  Receive Date: 20040713
  Receipt Date: 20040628
  Transmission Date: 20050211
  Serious: Yes (Hospitalization)
  Sender: FDA-Public Use
  Company Number: CA-JNJFOC-20040600557

PATIENT
  Age: 59 Year
  Sex: Female
  Weight: 70.1 kg

DRUGS (9)
  1. REMICADE [Suspect]
     Indication: RHEUMATOID ARTHRITIS
     Dosage: 300 MG, 1 IN 8 WEEK, INTRAVENOUS
     Route: 042
     Dates: start: 20040505, end: 20040505
  2. REMICADE [Suspect]
     Indication: RHEUMATOID ARTHRITIS
     Dosage: 300 MG, 1 IN 8 WEEK, INTRAVENOUS
     Route: 042
     Dates: start: 20030908
  3. MTX (METHOTREXATE SODIUM) TABLETS [Concomitant]
  4. METFORMIN (METFORMIN) TABLETS [Concomitant]
  5. FOLIC ACID [Concomitant]
  6. PREDNISONE [Concomitant]
  7. VIOXX [Concomitant]
  8. FOSAMAX [Concomitant]
  9. CALCIUM 500 MG + VITAMIN D(CALCIUM WITH VITAMIN D) [Concomitant]

REACTIONS (7)
  - ARTHROPATHY [None]
  - BLOOD GLUCOSE INCREASED [None]
  - CELLULITIS [None]
  - CONDITION AGGRAVATED [None]
  - DRUG INEFFECTIVE [None]
  - LOCALISED OSTEOARTHRITIS [None]
  - RHEUMATOID ARTHRITIS [None]
